FAERS Safety Report 4720492-8 (Version None)
Quarter: 2005Q3

REPORT INFORMATION
  Report Type: 
  Country: None (occurrence: None)
  Receive Date: 20050721
  Receipt Date: 20041122
  Transmission Date: 20060218
  Serious: No
  Sender: FDA-Public Use
  Company Number: US-BRISTOL-MYERS SQUIBB COMPANY-12773214

PATIENT
  Age: 59 Year
  Sex: Female

DRUGS (3)
  1. GLUCOVANCE [Suspect]
     Indication: DIABETES MELLITUS
     Dosage: 1 AND 1/2 TABLETS TWICE DAILY
     Route: 048
     Dates: start: 20030507
  2. LIPITOR [Concomitant]
  3. ACIPHEX [Concomitant]

REACTIONS (2)
  - BLOOD GLUCOSE FLUCTUATION [None]
  - STOOL ANALYSIS ABNORMAL [None]
